FAERS Safety Report 17501073 (Version 4)
Quarter: 2020Q1

REPORT INFORMATION
  Report Type: Report from Study
  Country: CN (occurrence: CN)
  Receive Date: 20200305
  Receipt Date: 20200325
  Transmission Date: 20200409
  Serious: Yes (Hospitalization, Other)
  Sender: FDA-Public Use
  Company Number: CN-JNJFOC-20200232050

PATIENT
  Age: 77 Year
  Sex: Male
  Weight: 68 kg

DRUGS (10)
  1. NEXIUM [Concomitant]
     Active Substance: ESOMEPRAZOLE MAGNESIUM
     Route: 065
  2. XARELTO [Concomitant]
     Active Substance: RIVAROXABAN
     Route: 065
  3. BORTEZOMIB. [Suspect]
     Active Substance: BORTEZOMIB
     Indication: PLASMA CELL MYELOMA
     Dosage: MOST RECENT DOSE PRIOR TO EVENT 16/JAN/2020?MEDICATION KIT NUMBER 85396-04
     Route: 058
     Dates: start: 20191126
  4. MELPHALAN. [Concomitant]
     Active Substance: MELPHALAN
     Indication: PLASMA CELL MYELOMA
     Dosage: MOST RECENT DOSE PRIOR TO EVENT 12/JAN/2020?MEDICATION KIT NUMBER 59626
     Route: 048
     Dates: start: 20191126
  5. CALCIUM D                          /01272001/ [Concomitant]
     Route: 065
  6. SODIUM BICARBONATE. [Concomitant]
     Active Substance: SODIUM BICARBONATE
     Route: 065
  7. DARATUMUMAB [Suspect]
     Active Substance: DARATUMUMAB
     Indication: PLASMA CELL MYELOMA
     Dosage: MOST RECENT DOSE PRIOR TO EVENT  09/JAN/2020?MEDICATION KIT NUMBER 4012330-01-03
     Route: 042
     Dates: start: 20191126
  8. PREDNISONE. [Concomitant]
     Active Substance: PREDNISONE
     Indication: PLASMA CELL MYELOMA
     Dosage: MOST RECENT DOSE PRIOR TO EVENT 12/JAN/2020?MEDICATION KIT NUMBER 70117
     Route: 048
     Dates: start: 20191126
  9. FINASTERIDE. [Concomitant]
     Active Substance: FINASTERIDE
     Route: 065
  10. MECOBALAMIN [Concomitant]
     Active Substance: METHYLCOBALAMIN
     Route: 065

REACTIONS (2)
  - Tremor [Recovered/Resolved]
  - Neuropathy peripheral [Recovering/Resolving]

NARRATIVE: CASE EVENT DATE: 202002
